FAERS Safety Report 4443417-1 (Version None)
Quarter: 2004Q3

REPORT INFORMATION
  Report Type: 
  Country: None (occurrence: None)
  Receive Date: 20040901
  Receipt Date: 20040817
  Transmission Date: 20050211
  Serious: Yes (Life-Threatening, Hospitalization, Disabling, Other)
  Sender: FDA-Public Use
  Company Number: 200411935BWH

PATIENT
  Age: 20 Year
  Sex: Female

DRUGS (2)
  1. AVELOX [Suspect]
     Indication: SINUS DISORDER
     Dosage: 400 MG DAILY, ORAL
     Route: 048
     Dates: start: 20031120
  2. ORTHO TRI-CYCLEN [Concomitant]

REACTIONS (24)
  - ANAPHYLACTIC REACTION [None]
  - ANOXIC ENCEPHALOPATHY [None]
  - APALLIC SYNDROME [None]
  - BRAIN DAMAGE [None]
  - BRAIN OEDEMA [None]
  - BRONCHITIS [None]
  - CARDIO-RESPIRATORY ARREST [None]
  - COMA [None]
  - CYANOSIS [None]
  - DECEREBRATION [None]
  - DISSEMINATED INTRAVASCULAR COAGULATION [None]
  - GRAND MAL CONVULSION [None]
  - HEPATIC FAILURE [None]
  - HYPERGLYCAEMIA [None]
  - HYPOKALAEMIA [None]
  - HYPOTENSION [None]
  - INCREASED BRONCHIAL SECRETION [None]
  - ISCHAEMIC HEPATITIS [None]
  - PARALYSIS [None]
  - PNEUMOTHORAX [None]
  - POSTURING [None]
  - PSEUDOMONAL BACTERAEMIA [None]
  - RESPIRATORY FAILURE [None]
  - STAPHYLOCOCCAL INFECTION [None]
